FAERS Safety Report 7274422-8 (Version None)
Quarter: 2011Q1

REPORT INFORMATION
  Report Type: 
  Country: None (occurrence: None)
  Receive Date: 20110201
  Receipt Date: 20110201
  Transmission Date: 20110831
  Serious: Yes (Hospitalization)
  Sender: FDA-Public Use
  Company Number: None

PATIENT
  Sex: Female
  Weight: 66 kg

DRUGS (2)
  1. CISPLATIN [Suspect]
     Dosage: 351 MG
  2. FLUOROURACIL [Suspect]
     Dosage: 8640 MG

REACTIONS (1)
  - DIARRHOEA [None]
